FAERS Safety Report 4776400-7 (Version None)
Quarter: 2005Q3

REPORT INFORMATION
  Report Type: 
  Country: None (occurrence: None)
  Receive Date: 20050921
  Receipt Date: 20050810
  Transmission Date: 20060218
  Serious: Yes (Hospitalization)
  Sender: FDA-Public Use
  Company Number: 2005RR-00650

PATIENT
  Age: 14 Year
  Sex: Male

DRUGS (2)
  1. DOXYCYCLINE [Suspect]
     Indication: ACNE
  2. ZINC [Concomitant]

REACTIONS (2)
  - DRUG ADMINISTRATION ERROR [None]
  - OESOPHAGITIS [None]
